FAERS Safety Report 24011123 (Version 1)
Quarter: 2024Q2

REPORT INFORMATION
  Report Type: Report from Study
  Country: ES (occurrence: ES)
  Receive Date: 20240625
  Receipt Date: 20240625
  Transmission Date: 20240716
  Serious: Yes (Other)
  Sender: FDA-Public Use
  Company Number: ES-TEVA-VS-3209702

PATIENT
  Age: 86 Year
  Sex: Female

DRUGS (12)
  1. TERIPARATIDE [Suspect]
     Active Substance: TERIPARATIDE
     Indication: Osteoporosis
     Route: 065
     Dates: start: 20230419
  2. FLECAINIDE ACETATE [Concomitant]
     Active Substance: FLECAINIDE ACETATE
     Indication: Arrhythmia
     Dosage: DOSAGE: 1/24H, START DATE: LONG AGO, END DATE: ONGOING
  3. EZETIMIBE [Concomitant]
     Active Substance: EZETIMIBE
     Indication: Hypercholesterolaemia
     Dosage: DOSAGE: 1/2 A DAY, START DATE: LONG AGO, END DATE: ONGOING
  4. ELIQUIS [Concomitant]
     Active Substance: APIXABAN
     Indication: Atrial fibrillation
     Dosage: DOSAGE: 1/24H, START DATE: LONG AGO, END DATE: ONGOING
  5. PREDNISONE [Concomitant]
     Active Substance: PREDNISONE
     Indication: Antiinflammatory therapy
     Dosage: DOSAGE: 1/2-0-0
     Dates: start: 20240429, end: 20240502
  6. PREDNISONE [Concomitant]
     Active Substance: PREDNISONE
     Indication: Antiinflammatory therapy
     Dosage: DOSAGE: 1/4-0-0
     Dates: start: 20240503, end: 20240606
  7. Ebastel Forte [Concomitant]
     Indication: Hypersensitivity
     Dosage: DOSAGE: 1/24H
     Dates: start: 20240412, end: 20240429
  8. NASONEX [Concomitant]
     Active Substance: MOMETASONE FUROATE
     Indication: Hypersensitivity
     Dosage: DOSAGE: 1-1-1
     Dates: start: 20240429
  9. ELIQUIS [Concomitant]
     Active Substance: APIXABAN
     Indication: Atrial fibrillation
     Dosage: DOSAGE: 2.5 MG/ 12H, START DATE: YEARS AGO, END DATE: ONGOING
  10. FLECAINIDE ACETATE [Concomitant]
     Active Substance: FLECAINIDE ACETATE
     Indication: Atrial fibrillation
     Dosage: DOSAGE: 50 MG/ 12H, START DATE: YEARS AGO, END DATE: ONGOING
  11. EZETIMIBE [Concomitant]
     Active Substance: EZETIMIBE
     Indication: Atrial fibrillation
     Dosage: DOSAGE: 50 MG/ 12H, START DATE: YEARS AGO, END DATE: ONGOING
  12. VIDESIL [Concomitant]
     Indication: Osteoporosis
     Dosage: DOSAGE: 1 EVERY 15 DAYS
     Dates: start: 202404

REACTIONS (2)
  - Tachycardia [Not Recovered/Not Resolved]
  - Palpitations [Not Recovered/Not Resolved]

NARRATIVE: CASE EVENT DATE: 20240501
